FAERS Safety Report 4441400-3 (Version None)
Quarter: 2004Q3

REPORT INFORMATION
  Report Type: 
  Country: None (occurrence: None)
  Receive Date: 20040728
  Receipt Date: 20040405
  Transmission Date: 20050211
  Serious: No
  Sender: FDA-Public Use
  Company Number: USA040464152

PATIENT

DRUGS (2)
  1. STRATTERA [Suspect]
  2. METHADONE HCL [Concomitant]

REACTIONS (2)
  - DRUG DEPENDENCE [None]
  - DRUG INTERACTION [None]
